FAERS Safety Report 11093042 (Version 1)
Quarter: 2015Q2

REPORT INFORMATION
  Report Type: Spontaneous
  Country: FR (occurrence: FR)
  Receive Date: 20150506
  Receipt Date: 20150506
  Transmission Date: 20150821
  Serious: Yes (Hospitalization)
  Sender: FDA-Public Use
  Company Number: FR-TEVA-560673ISR

PATIENT
  Age: 63 Year
  Sex: Female

DRUGS (4)
  1. LAMALINE [Suspect]
     Active Substance: ACETAMINOPHEN\CAFFEINE\OPIUM
     Dosage: USUAL TREATMENT
     Route: 048
  2. HUMIRA [Suspect]
     Active Substance: ADALIMUMAB
     Dosage: USUAL TREATMENT
     Route: 058
     Dates: start: 201308
  3. LEVOTHYROX [Suspect]
     Active Substance: LEVOTHYROXINE
     Dosage: USUAL TREATMENT
     Route: 048
  4. ESTREVA 0.1 % [Suspect]
     Active Substance: ESTRADIOL
     Dosage: 2 DOSAGE FORMS DAILY; ONE DOSAGE FROM ON EACH ARM. USUAL TREATMENT
     Route: 003
     Dates: start: 2002

REACTIONS (1)
  - Transient ischaemic attack [Recovered/Resolved]

NARRATIVE: CASE EVENT DATE: 20150124
